FAERS Safety Report 14223169 (Version 1)
Quarter: 2017Q4

REPORT INFORMATION
  Report Type: Spontaneous
  Country: CA (occurrence: CA)
  Receive Date: 20171124
  Receipt Date: 20171124
  Transmission Date: 20180321
  Serious: Yes (Other)
  Sender: FDA-Public Use
  Company Number: CA-AMGEN-CANSP2017175521

PATIENT
  Age: 48 Year
  Sex: Male

DRUGS (19)
  1. SULFASALAZINE. [Suspect]
     Active Substance: SULFASALAZINE
     Indication: RHEUMATOID ARTHRITIS
     Dosage: 1 G, BID
     Route: 065
  2. AMOXICILLIN TRIHYDRATE AND CLAVULANATE POTASS [Concomitant]
     Dosage: 500 MG, TID
  3. PMS AZITHROMYCIN [Concomitant]
     Active Substance: AZITHROMYCIN ANHYDROUS
     Dosage: 250 MG, UNK
  4. PREDNISONE. [Concomitant]
     Active Substance: PREDNISONE
     Dosage: UNK
  5. APO-LEFLUNOMIDE [Suspect]
     Active Substance: LEFLUNOMIDE
     Indication: RHEUMATOID ARTHRITIS
     Dosage: 20 MG, QD
     Route: 065
  6. CEFUROXIME AXETIL. [Concomitant]
     Active Substance: CEFUROXIME AXETIL
     Dosage: 500 MG, UNK
  7. HYDROCHLOROTHIAZIDE. [Concomitant]
     Active Substance: HYDROCHLOROTHIAZIDE
     Dosage: 25 MG, QD
  8. WINPRED [Concomitant]
     Active Substance: PREDNISONE
     Dosage: 1 MG, UNK
  9. HYDROXYCHLOROQUINE [Suspect]
     Active Substance: HYDROXYCHLOROQUINE
     Indication: RHEUMATOID ARTHRITIS
     Dosage: 400 MG, QD
     Route: 065
  10. METHOTREXATE SODIUM. [Suspect]
     Active Substance: METHOTREXATE SODIUM
     Indication: RHEUMATOID ARTHRITIS
     Dosage: 20 MG, QWK
     Route: 065
  11. APO-PREDNISONE [Concomitant]
     Active Substance: PREDNISONE
     Dosage: 5 MG, UNK
  12. NEBIVOLOL HYDROCHLORIDE [Concomitant]
     Active Substance: NEBIVOLOL HYDROCHLORIDE
     Dosage: 10 MG, QD
  13. HUMIRA [Concomitant]
     Active Substance: ADALIMUMAB
     Dosage: UNK
  14. XELJANZ [Concomitant]
     Active Substance: TOFACITINIB CITRATE
     Dosage: 5 MG, BID
     Route: 048
  15. ENBREL [Suspect]
     Active Substance: ETANERCEPT
     Indication: RHEUMATOID ARTHRITIS
     Dosage: UNK
     Route: 065
  16. REMICADE [Concomitant]
     Active Substance: INFLIXIMAB
     Dosage: UNK
  17. BUDESONIDE. [Concomitant]
     Active Substance: BUDESONIDE
     Dosage: 200 MUG, UNK
  18. FLUOROURACIL. [Concomitant]
     Active Substance: FLUOROURACIL
     Dosage: UNK
  19. OSELTAMIVIR [Concomitant]
     Active Substance: OSELTAMIVIR
     Dosage: 75 MG, UNK

REACTIONS (5)
  - Joint swelling [Unknown]
  - Rheumatoid arthritis [Unknown]
  - C-reactive protein abnormal [Unknown]
  - Drug ineffective [Unknown]
  - Surgery [Unknown]
